FAERS Safety Report 5192384-4 (Version None)
Quarter: 2006Q4

REPORT INFORMATION
  Report Type: 
  Country: None (occurrence: None)
  Receive Date: 20061227
  Receipt Date: 20061221
  Transmission Date: 20070319
  Serious: Yes (Other)
  Sender: FDA-Public Use
  Company Number: US-ROXANE LABORATORIES, INC-2006-DE-06816GD

PATIENT
  Age: 5 Month
  Weight: 3 kg

DRUGS (2)
  1. HYDROCHLOROTHIAZIDE [Suspect]
     Indication: BRONCHOPULMONARY DYSPLASIA
  2. NEOCATE [Suspect]

REACTIONS (3)
  - HYPONATRAEMIC ENCEPHALOPATHY [None]
  - IRRITABILITY [None]
  - LETHARGY [None]
